FAERS Safety Report 10380797 (Version 3)
Quarter: 2014Q3

REPORT INFORMATION
  Report Type: Spontaneous
  Country: US (occurrence: US)
  Receive Date: 20140813
  Receipt Date: 20140922
  Transmission Date: 20150326
  Serious: Yes (Death, Life-Threatening, Hospitalization)
  Sender: FDA-Public Use
  Company Number: US-UNITED THERAPEUTICS-UNT-2014-005358

PATIENT
  Age: 25 Year
  Sex: Female
  Weight: 47.62 kg

DRUGS (3)
  1. ORENITRAM [Suspect]
     Active Substance: TREPROSTINIL
     Indication: COR PULMONALE CHRONIC
     Dosage: 1 MG, TID
     Route: 048
     Dates: start: 20140728
  2. REMODULIN [Suspect]
     Active Substance: TREPROSTINIL
     Indication: COR PULMONALE CHRONIC
     Dosage: 0.039 ?G/KG, CONTINUING
     Route: 058
     Dates: start: 20140514
  3. SILDENAFIL [Concomitant]
     Active Substance: SILDENAFIL
     Indication: PRODUCT USED FOR UNKNOWN INDICATION

REACTIONS (2)
  - Death [Fatal]
  - Septic shock [Recovering/Resolving]

NARRATIVE: CASE EVENT DATE: 2014
